FAERS Safety Report 15282567 (Version 1)
Quarter: 2018Q3

REPORT INFORMATION
  Report Type: Spontaneous
  Country: FR (occurrence: FR)
  Receive Date: 20180816
  Receipt Date: 20180816
  Transmission Date: 20181010
  Serious: Yes (Hospitalization, Other)
  Sender: FDA-Public Use
  Company Number: FR-AUROBINDO-AUR-APL-2018-034597

PATIENT
  Age: 62 Year
  Sex: Male
  Weight: 76 kg

DRUGS (7)
  1. DUROGESIC [Concomitant]
     Active Substance: FENTANYL
     Indication: PRODUCT USED FOR UNKNOWN INDICATION
     Dosage: UNK
     Route: 065
  2. CODEINE [Concomitant]
     Active Substance: CODEINE
     Indication: PAIN
     Dosage: UNKNOWN
     Route: 048
     Dates: start: 201804, end: 20180410
  3. ERBITUX [Concomitant]
     Active Substance: CETUXIMAB
     Indication: LARYNGEAL CANCER
     Dosage: UNKNOWN
     Route: 042
     Dates: start: 20180307, end: 20180425
  4. PARACETAMOL [Suspect]
     Active Substance: ACETAMINOPHEN
     Indication: PAIN
     Dosage: UNK
     Route: 048
     Dates: start: 20180301
  5. ORAMORPH [Concomitant]
     Active Substance: MORPHINE SULFATE
     Indication: PRODUCT USED FOR UNKNOWN INDICATION
     Dosage: UNK
     Route: 065
  6. ERBITUX [Concomitant]
     Active Substance: CETUXIMAB
     Indication: LARYNGEAL CANCER
  7. IXPRIM [Suspect]
     Active Substance: ACETAMINOPHEN\TRAMADOL HYDROCHLORIDE
     Indication: PAIN
     Dosage: UNKNOWN
     Route: 048
     Dates: start: 201804, end: 20180410

REACTIONS (2)
  - Intentional product misuse [Recovered/Resolved]
  - Hepatitis acute [Recovering/Resolving]

NARRATIVE: CASE EVENT DATE: 201803
